FAERS Safety Report 17290004 (Version 1)
Quarter: 2020Q1

REPORT INFORMATION
  Report Type: Other
  Country: IT (occurrence: IT)
  Receive Date: 20200120
  Receipt Date: 20200120
  Transmission Date: 20200409
  Serious: Yes (Hospitalization)
  Sender: FDA-Public Use
  Company Number: IT-CELLTRION INC.-2020IT017735

PATIENT

DRUGS (16)
  1. HYDROCORTISONE. [Concomitant]
     Active Substance: HYDROCORTISONE
  2. CHLORPHENAMINE MALEATE [Concomitant]
     Active Substance: CHLORPHENIRAMINE MALEATE
  3. DOXORUBICIN HYDROCHLORIDE. [Suspect]
     Active Substance: DOXORUBICIN HYDROCHLORIDE
     Indication: LYMPHOMA
     Dosage: 93.5 MG, CYCLIC
     Route: 042
     Dates: start: 20190903
  4. RITUXIMAB (UNKNOWN) [Suspect]
     Active Substance: RITUXIMAB
     Indication: LYMPHOMA
     Dosage: 701.3 MG, CYCLIC
     Route: 042
     Dates: start: 20190910
  5. VINCRISTINE SULFATE. [Suspect]
     Active Substance: VINCRISTINE SULFATE
     Indication: LYMPHOMA
     Dosage: 1.5 MG, CYCLIC
     Route: 042
     Dates: start: 20190903
  6. BACTRIM 160 MG + 800 MG [Concomitant]
  7. TROPISETRON HYDROCHLORIDE [Concomitant]
     Active Substance: TROPISETRON HYDROCHLORIDE
  8. ZEFFIX 100 MG FILM-COATED TABLETS [Concomitant]
  9. MYCOSTATIN 100.000 U.I./ML [Concomitant]
  10. CARDIOASPIRIN 100 MG [Concomitant]
     Active Substance: ASPIRIN
  11. PARACETAMOL [Concomitant]
     Active Substance: ACETAMINOPHEN
  12. CYCLOPHOSPHAMIDE. [Suspect]
     Active Substance: CYCLOPHOSPHAMIDE
     Indication: LYMPHOMA
     Dosage: 1403 MG, CYCLIC
     Route: 042
     Dates: start: 20190903
  13. ACICLOVIR [Concomitant]
     Active Substance: ACYCLOVIR
  14. METHOTREXATE. [Suspect]
     Active Substance: METHOTREXATE
     Indication: LYMPHOMA
     Dosage: 12.5 MG, CYCLIC
     Route: 042
     Dates: start: 20190924
  15. METHYLPREDNISOLONE. [Concomitant]
     Active Substance: METHYLPREDNISOLONE
  16. GRANISETRON HYDROCHLORIDE. [Concomitant]
     Active Substance: GRANISETRON HYDROCHLORIDE

REACTIONS (3)
  - Speech disorder [Recovering/Resolving]
  - Cerebral ischaemia [Recovering/Resolving]
  - Facial paresis [Recovering/Resolving]

NARRATIVE: CASE EVENT DATE: 20191028
